FAERS Safety Report 13839535 (Version 1)
Quarter: 2017Q3

REPORT INFORMATION
  Report Type: Spontaneous
  Country: US (occurrence: US)
  Receive Date: 20170805
  Receipt Date: 20170805
  Transmission Date: 20171127
  Serious: No
  Sender: FDA-Public Use
  Company Number: None

PATIENT
  Age: 62 Year
  Sex: Female

DRUGS (16)
  1. ATORVASTATIN [Concomitant]
     Active Substance: ATORVASTATIN
  2. LISINOPRIL. [Concomitant]
     Active Substance: LISINOPRIL
  3. OXYCODONE ER [Suspect]
     Active Substance: OXYCODONE
     Indication: PAIN
     Route: 048
     Dates: start: 20170119
  4. DOCUSATE [Concomitant]
     Active Substance: DOCUSATE
  5. LORAZEPAM. [Concomitant]
     Active Substance: LORAZEPAM
  6. OXYCODONE [Suspect]
     Active Substance: OXYCODONE
     Dosage: 15 MG EVERY 4 HOURS PRN PO
     Route: 048
  7. ACETAMINOPHEN. [Concomitant]
     Active Substance: ACETAMINOPHEN
  8. DIAZEPAM. [Concomitant]
     Active Substance: DIAZEPAM
  9. DULOXETINE. [Concomitant]
     Active Substance: DULOXETINE
  10. METOPROLOL. [Concomitant]
     Active Substance: METOPROLOL
  11. BENZOCAINE-MENTHOL [Concomitant]
  12. LIDOCAINE. [Concomitant]
     Active Substance: LIDOCAINE
  13. OXYCODONE [Concomitant]
     Active Substance: OXYCODONE
  14. HYDROMORPHONE [Concomitant]
     Active Substance: HYDROMORPHONE
  15. LACTOBACILLUS GRANULES [Concomitant]
  16. POTASSIUM CHLORIDE. [Concomitant]
     Active Substance: POTASSIUM CHLORIDE

REACTIONS (3)
  - Constipation [None]
  - Diarrhoea [None]
  - Abdominal discomfort [None]

NARRATIVE: CASE EVENT DATE: 20170119
